FAERS Safety Report 8480261-2 (Version None)
Quarter: 2012Q2

REPORT INFORMATION
  Report Type: 
  Country: None (occurrence: None)
  Receive Date: 20120629
  Receipt Date: 20120618
  Transmission Date: 20120825
  Serious: No
  Sender: FDA-Public Use
  Company Number: US-ASTRAZENECA-2012SE25492

PATIENT
  Age: 66 Year
  Sex: Female
  Weight: 102.7 kg

DRUGS (4)
  1. FASLODEX [Suspect]
     Indication: BREAST CANCER
     Route: 030
     Dates: start: 20110908
  2. OTC VITAMINS [Concomitant]
  3. FLACID OIL [Concomitant]
     Dosage: QAM
  4. VITAMIN K TAB [Concomitant]

REACTIONS (1)
  - VULVOVAGINAL DRYNESS [None]
